FAERS Safety Report 18940608 (Version 3)
Quarter: 2021Q1

REPORT INFORMATION
  Report Type: Report from Study
  Country: CO (occurrence: CO)
  Receive Date: 20210225
  Receipt Date: 20210329
  Transmission Date: 20210420
  Serious: Yes (Other)
  Sender: FDA-Public Use
  Company Number: CO-JNJFOC-20200907420

PATIENT
  Age: 5 Decade
  Sex: Female
  Weight: 55 kg

DRUGS (8)
  1. DORIXINA RELAX [Concomitant]
  2. BETASERC [Concomitant]
     Active Substance: BETAHISTINE
  3. SIMPONI [Suspect]
     Active Substance: GOLIMUMAB
     Route: 058
     Dates: start: 20210205
  4. MAREOL [Concomitant]
  5. SIMPONI [Suspect]
     Active Substance: GOLIMUMAB
     Indication: PSORIATIC ARTHROPATHY
     Route: 058
     Dates: start: 20180727, end: 20201102
  6. SIMPONI [Suspect]
     Active Substance: GOLIMUMAB
     Route: 058
     Dates: start: 20191119
  7. METHOTREXATE. [Concomitant]
     Active Substance: METHOTREXATE
  8. SIMPONI [Suspect]
     Active Substance: GOLIMUMAB
     Route: 058
     Dates: start: 20200820

REACTIONS (5)
  - Back pain [Recovered/Resolved]
  - Arthralgia [Recovered/Resolved]
  - COVID-19 [Recovered/Resolved]
  - Drug ineffective [Not Recovered/Not Resolved]
  - Coccydynia [Recovered/Resolved]

NARRATIVE: CASE EVENT DATE: 2020
